FAERS Safety Report 25061836 (Version 2)
Quarter: 2025Q1

REPORT INFORMATION
  Report Type: Spontaneous
  Country: GB (occurrence: GB)
  Receive Date: 20250311
  Receipt Date: 20250318
  Transmission Date: 20250409
  Serious: No
  Sender: ALEXION PHARMACEUTICALS
  Company Number: GB-ASTRAZENECA-202503GBR004344GB

PATIENT
  Age: 63 Year

DRUGS (4)
  1. FULVESTRANT [Suspect]
     Active Substance: FULVESTRANT
     Indication: Breast cancer
     Route: 065
  2. FULVESTRANT [Suspect]
     Active Substance: FULVESTRANT
  3. RIBOCICLIB [Suspect]
     Active Substance: RIBOCICLIB
     Route: 065
  4. DENOSUMAB [Suspect]
     Active Substance: DENOSUMAB
     Route: 065

REACTIONS (1)
  - No adverse event [Unknown]
